FAERS Safety Report 7034717-X (Version None)
Quarter: 2010Q4

REPORT INFORMATION
  Report Type: 
  Country: None (occurrence: None)
  Receive Date: 20101008
  Receipt Date: 20100929
  Transmission Date: 20110411
  Serious: Yes (Other)
  Sender: FDA-Public Use
  Company Number: US-JNJFOC-20100708772

PATIENT
  Sex: Female

DRUGS (2)
  1. REMICADE [Suspect]
     Indication: RHEUMATOID ARTHRITIS
     Route: 042
  2. REMICADE [Suspect]
     Route: 042

REACTIONS (24)
  - BACK PAIN [None]
  - CHEST DISCOMFORT [None]
  - CHROMATURIA [None]
  - COLD SWEAT [None]
  - DIARRHOEA [None]
  - DIZZINESS [None]
  - DYSPHAGIA [None]
  - FLUSHING [None]
  - HEADACHE [None]
  - HEART RATE DECREASED [None]
  - HYPERHIDROSIS [None]
  - HYPERTENSION [None]
  - INFECTION [None]
  - INFUSION RELATED REACTION [None]
  - JOINT SWELLING [None]
  - LOCAL SWELLING [None]
  - MUSCULAR WEAKNESS [None]
  - NAUSEA [None]
  - OROPHARYNGEAL DISCOMFORT [None]
  - PAIN IN EXTREMITY [None]
  - PARAESTHESIA ORAL [None]
  - SKIN ODOUR ABNORMAL [None]
  - URINARY INCONTINENCE [None]
  - URINE ODOUR ABNORMAL [None]
